FAERS Safety Report 7308608 (Version 5)
Quarter: 2013Q3

REPORT INFORMATION
  Report Type: Report from Study
  Country: CA (occurrence: CA)
  Receive Date: 20100308
  Receipt Date: 20130904
  Transmission Date: 20140515
  Serious: Yes (Other)
  Sender: FDA-Public Use
  Company Number: PHHY2010CA11040

PATIENT
  Age: 79 Year
  Sex: Male

DRUGS (13)
  1. GLEEVEC [Suspect]
     Indication: GASTROINTESTINAL STROMAL TUMOUR
     Dosage: 300 MG, QD
     Route: 048
     Dates: start: 200911, end: 201105
  2. GLEEVEC [Suspect]
     Dosage: 400 MG, DAILY
     Route: 048
     Dates: start: 200912, end: 201001
  3. GLEEVEC [Suspect]
     Dosage: 300 MG, QD
     Route: 048
     Dates: start: 201208
  4. FLUOROURACIL W/OXALIPLATIN [Concomitant]
  5. CHEMOTHERAPEUTICS NOS [Concomitant]
     Indication: COLORECTAL CANCER
  6. VITAMIN D [Concomitant]
     Dosage: 1000 U, UNK
  7. METFORMIN [Concomitant]
  8. RABEPRAZOL [Concomitant]
  9. LIPITOR [Concomitant]
  10. FOSAMAX [Concomitant]
  11. SYMBICORT [Concomitant]
  12. SPIRIVA [Concomitant]
  13. AVODART [Concomitant]

REACTIONS (12)
  - Ageusia [Recovering/Resolving]
  - Gastrointestinal stromal tumour [Unknown]
  - Neoplasm recurrence [Unknown]
  - Fatigue [Recovering/Resolving]
  - Weight decreased [Recovering/Resolving]
  - Helicobacter infection [Unknown]
  - Decreased appetite [Recovering/Resolving]
  - Dysgeusia [Not Recovered/Not Resolved]
  - Pyrexia [Unknown]
  - Chills [Unknown]
  - Dyspnoea [Unknown]
  - Cough [Unknown]
